FAERS Safety Report 7634066-2 (Version None)
Quarter: 2011Q3

REPORT INFORMATION
  Report Type: 
  Country: None (occurrence: None)
  Receive Date: 20110725
  Receipt Date: 20110717
  Transmission Date: 20111222
  Serious: Yes (Hospitalization)
  Sender: FDA-Public Use
  Company Number: IT-AMGEN-ITACT2011036261

PATIENT
  Age: 68 Year
  Sex: Male
  Weight: 85 kg

DRUGS (8)
  1. LEUCOVORIN CALCIUM [Concomitant]
     Dosage: 400 MG, UNK
     Dates: start: 20110419
  2. FLUOROURACIL [Concomitant]
     Dosage: 4800 UNK, UNK
     Dates: start: 20110419
  3. LANSOPRAZOLE [Concomitant]
     Dosage: 30 MG, UNK
     Route: 048
     Dates: start: 20110419
  4. DEXAMETHASONE [Concomitant]
     Dosage: 4 MG, UNK
     Route: 048
     Dates: start: 20110419, end: 20110422
  5. IRINOTECAN HCL [Concomitant]
     Dosage: 300 MG, UNK
     Dates: start: 20110419
  6. OXALIPLATIN [Concomitant]
     Dosage: 170 MG, UNK
     Dates: start: 20110419
  7. PANITUMUMAB [Suspect]
     Indication: COLORECTAL CANCER METASTATIC
     Dosage: 522 MG, UNK
     Dates: start: 20110419
  8. ENALAPRIL MALEATE [Concomitant]
     Dosage: 20 MG, UNK
     Route: 048

REACTIONS (2)
  - DIARRHOEA [None]
  - CHEST PAIN [None]
